FAERS Safety Report 6649507-7 (Version None)
Quarter: 2010Q1

REPORT INFORMATION
  Report Type: 
  Country: None (occurrence: None)
  Receive Date: 20100324
  Receipt Date: 20100324
  Transmission Date: 20100710
  Serious: Yes (Death, Other)
  Sender: FDA-Public Use
  Company Number: None

PATIENT
  Age: 90 Year
  Sex: Male
  Weight: 65 kg

DRUGS (8)
  1. OPIUM AND BELLADONA [Suspect]
     Indication: BLADDER SPASM
     Dosage: 16.2/30 PRN RECTAL
     Route: 054
     Dates: start: 20100219, end: 20100219
  2. LORAZEPAM [Suspect]
     Indication: ANXIETY
     Dosage: 0.5 MG PRN PO
     Route: 048
     Dates: start: 20100219, end: 20100219
  3. DIGOXIN [Concomitant]
  4. PYRIDOSTIGMINE BROMIDE [Concomitant]
  5. SLIDING SCALE INSULIN [Concomitant]
  6. ENOXAPARIN SODIUM [Concomitant]
  7. FAMOTIDINE [Suspect]
  8. METOCLOPRAMIDE HYDROCHLORIDE [Suspect]

REACTIONS (3)
  - DEPRESSED LEVEL OF CONSCIOUSNESS [None]
  - GENERAL PHYSICAL HEALTH DETERIORATION [None]
  - RESPIRATORY DEPRESSION [None]
